FAERS Safety Report 25931959 (Version 1)
Quarter: 2025Q4

REPORT INFORMATION
  Report Type: Spontaneous
  Country: US (occurrence: US)
  Receive Date: 20251016
  Receipt Date: 20251016
  Transmission Date: 20260117
  Serious: Yes (Other)
  Sender: SPROUT PHARMACEUTICALS
  Company Number: US-SPROUT PHARMACEUTICALS, INC.-2025SP000083

PATIENT

DRUGS (1)
  1. ADDYI [Suspect]
     Active Substance: FLIBANSERIN
     Indication: Menopausal symptoms
     Dosage: 100 MILLIGRAM
     Route: 048
     Dates: start: 20250412, end: 20250426

REACTIONS (2)
  - Hypersensitivity [Recovered/Resolved]
  - Product use in unapproved indication [Recovered/Resolved]

NARRATIVE: CASE EVENT DATE: 20250412
